FAERS Safety Report 5343922-X (Version None)
Quarter: 2007Q2

REPORT INFORMATION
  Report Type: 
  Country: None (occurrence: None)
  Receive Date: 20070531
  Receipt Date: 20070516
  Transmission Date: 20071010
  Serious: Yes (Life-Threatening, Other)
  Sender: FDA-Public Use
  Company Number: 07H-163-0312623-00

PATIENT
  Age: 40 Year
  Sex: Female
  Weight: 73 kg

DRUGS (10)
  1. FENTANYL [Suspect]
     Indication: INDUCTION OF ANAESTHESIA
     Dosage: 100 MCG, INTRAVENOUS
     Route: 042
  2. ESCITALOPRAM OXALATE [Concomitant]
  3. PROPOFOL [Concomitant]
  4. LIDOCAINE [Concomitant]
  5. MIDAZOLAM HCL [Concomitant]
  6. ROCURONIUM (ROCURONIUM) [Concomitant]
  7. 2% SEVOFLURANE IN 50% OXYGEN + 50% NITROGEN [Concomitant]
  8. DEXAMETHASONE TAB [Concomitant]
  9. METOCLOPRAMIDE [Concomitant]
  10. ONDANSETRON HCL [Concomitant]

REACTIONS (4)
  - ANAPHYLACTIC REACTION [None]
  - PULMONARY OEDEMA [None]
  - SINUS TACHYCARDIA [None]
  - SUPRAVENTRICULAR TACHYCARDIA [None]
